FAERS Safety Report 17074535 (Version 1)
Quarter: 2019Q4

REPORT INFORMATION
  Report Type: Spontaneous
  Country: FI (occurrence: FI)
  Receive Date: 20191126
  Receipt Date: 20191126
  Transmission Date: 20200122
  Serious: Yes (Life-Threatening)
  Sender: FDA-Public Use
  Company Number: FI-TEVA-2019-FI-1140875

PATIENT
  Age: 48 Year
  Sex: Female

DRUGS (15)
  1. CAPECITABINE ORION [Concomitant]
     Dates: start: 20190911
  2. OXYNORM [Concomitant]
     Active Substance: OXYCODONE HYDROCHLORIDE
     Dosage: ,,AS NECESSARY
     Dates: start: 20190823
  3. PRIMPERAN [Concomitant]
     Active Substance: METOCLOPRAMIDE HYDROCHLORIDE
     Dosage: ,,AS NECESSARY
     Dates: start: 20190320
  4. OPAMOX [Concomitant]
     Active Substance: OXAZEPAM
     Dosage: ,,AS NECESSARY
     Dates: start: 20190925
  5. PANADOL FORTE [Concomitant]
     Dates: start: 20170922
  6. GRANISETRON STADA [Concomitant]
     Dosage: ,,AS NECESSARY
     Dates: start: 20190320
  7. CANDESARTAN ACTAVIS [Concomitant]
     Active Substance: CANDESARTAN
     Dosage: 8,MG,DAILY , 8 MG 1 DAYS
     Dates: start: 20190905
  8. ABSTRAL [Concomitant]
     Active Substance: FENTANYL CITRATE
     Dosage: 900,?G,AS NECESSARY
     Dates: start: 20190925
  9. OXALIPLATIN. [Suspect]
     Active Substance: OXALIPLATIN
     Indication: NEOPLASM MALIGNANT
     Dosage: 190,MG,X1
     Route: 042
     Dates: start: 20191015, end: 20191015
  10. AMLODIPIN ORION [Concomitant]
     Dosage: 10,MG,DAILY , 10 MG 1 DAYS
     Dates: start: 20190513
  11. DEXAMETASON [Concomitant]
     Active Substance: DEXAMETHASONE
     Dosage: ,,AS NECESSARY
     Dates: start: 20190320
  12. PEGORION [Concomitant]
     Active Substance: POLYETHYLENE GLYCOL 4000
     Dosage: ,,AS NECESSARY
     Dates: start: 20190311
  13. VI-SIBLIN [Concomitant]
     Active Substance: HERBALS\PLANTAGO OVATA LEAF
     Dosage: ,,AS NECESSARY
     Dates: start: 20190304
  14. XYLOCAINE [Concomitant]
     Active Substance: LIDOCAINE HYDROCHLORIDE
     Dates: start: 20190923
  15. DUROGESIC [Concomitant]
     Active Substance: FENTANYL
     Dates: start: 20190905

REACTIONS (5)
  - Erythema [Recovered/Resolved]
  - Blood pressure decreased [Recovered/Resolved]
  - Hyperhidrosis [Recovered/Resolved]
  - Palpitations [Recovered/Resolved]
  - Chest discomfort [Recovered/Resolved]

NARRATIVE: CASE EVENT DATE: 20191015
